FAERS Safety Report 11010911 (Version 2)
Quarter: 2015Q2

REPORT INFORMATION
  Report Type: Spontaneous
  Country: JP (occurrence: JP)
  Receive Date: 20150410
  Receipt Date: 20150505
  Transmission Date: 20150821
  Serious: Yes (Other)
  Sender: FDA-Public Use
  Company Number: JP-MYLANLABS-2015M1011917

PATIENT

DRUGS (3)
  1. S-1 NP [Suspect]
     Active Substance: GIMERACIL\OTERACIL\TEGAFUR
     Indication: ANGIOSARCOMA
     Dosage: 120 MG, 80 MG/M2; MONTHLY
     Route: 065
  2. PACLITAXEL. [Suspect]
     Active Substance: PACLITAXEL
     Dosage: 175 MG/M2, 4 CYCLES OF TRI-WEEKLY
     Route: 065
  3. DOCETAXEL. [Suspect]
     Active Substance: DOCETAXEL
     Dosage: 60 MG, 40 MG/ME2, LATER DOSE REDUCED BY 20%
     Route: 065

REACTIONS (5)
  - Malaise [Unknown]
  - Lacrimation increased [Unknown]
  - Neutropenia [Unknown]
  - Drug resistance [Unknown]
  - Diarrhoea [Unknown]
